FAERS Safety Report 5118793-7 (Version None)
Quarter: 2006Q3

REPORT INFORMATION
  Report Type: 
  Country: None (occurrence: None)
  Receive Date: 20060927
  Receipt Date: 20060915
  Transmission Date: 20061208
  Serious: Yes (Other)
  Sender: FDA-Public Use
  Company Number: 2006-147878-NL

PATIENT
  Age: 41 Year
  Sex: Female

DRUGS (1)
  1. PUREGON [Suspect]
     Indication: INFERTILITY
     Dates: start: 20060301, end: 20060307

REACTIONS (1)
  - POLYNEUROPATHY [None]
